FAERS Safety Report 4639464-7 (Version None)
Quarter: 2005Q2

REPORT INFORMATION
  Report Type: 
  Country: None (occurrence: None)
  Receive Date: 20050418
  Receipt Date: 20050404
  Transmission Date: 20051028
  Serious: Yes (Hospitalization)
  Sender: FDA-Public Use
  Company Number: 02100-JPN-05-0116

PATIENT
  Age: 63 Year
  Sex: Female

DRUGS (8)
  1. CILOSTAZOL [Suspect]
     Indication: ATHEROSCLEROSIS
     Dosage: 150 MG/200MG; ORAL
     Route: 048
     Dates: start: 20030211, end: 20050217
  2. CILOSTAZOL [Suspect]
     Indication: ATHEROSCLEROSIS
     Dosage: 150 MG/200MG; ORAL
     Route: 048
     Dates: start: 20050218, end: 20050225
  3. GLICLAZIDE [Concomitant]
  4. METFORMIN HCL [Concomitant]
  5. IDAPAMIDE [Concomitant]
  6. FOLIC ACID [Concomitant]
  7. CALCITRIOL [Concomitant]
  8. MAGNESIUM OXIDE [Concomitant]

REACTIONS (3)
  - ATRIAL FIBRILLATION [None]
  - CARDIOMEGALY [None]
  - PULMONARY EMBOLISM [None]
